FAERS Safety Report 5055529-2 (Version None)
Quarter: 2006Q3

REPORT INFORMATION
  Report Type: 
  Country: None (occurrence: None)
  Receive Date: 20060717
  Receipt Date: 20060717
  Transmission Date: 20061208
  Serious: Yes (Other)
  Sender: FDA-Public Use
  Company Number: None

PATIENT
  Age: 79 Year
  Sex: Male

DRUGS (1)
  1. VARDENAFIL   10MG [Suspect]
     Indication: ERECTILE DYSFUNCTION
     Dosage: 10-20MG  PRN  PO
     Route: 048
     Dates: start: 20060112, end: 20060308

REACTIONS (2)
  - DRUG INEFFECTIVE [None]
  - HEADACHE [None]
